FAERS Safety Report 20123417 (Version 1)
Quarter: 2021Q4

REPORT INFORMATION
  Report Type: Spontaneous
  Country: DE (occurrence: DE)
  Receive Date: 20211129
  Receipt Date: 20211129
  Transmission Date: 20220303
  Serious: Yes (Other)
  Sender: FDA-Public Use
  Company Number: DE-009507513-2111DEU008590

PATIENT
  Age: 62 Year
  Sex: Female

DRUGS (8)
  1. PEMBROLIZUMAB [Suspect]
     Active Substance: PEMBROLIZUMAB
     Indication: Non-small cell lung cancer
     Dosage: FIRST LINE, 4 CYCLES
     Dates: start: 201902, end: 201905
  2. PEMBROLIZUMAB [Suspect]
     Active Substance: PEMBROLIZUMAB
     Dosage: MAINTENANCE
     Dates: start: 201906, end: 202002
  3. PEMETREXED [Suspect]
     Active Substance: PEMETREXED
     Indication: Non-small cell lung cancer
     Dosage: FIRST-LINE, 4 CYCLES
     Dates: start: 201902, end: 201905
  4. PEMETREXED [Suspect]
     Active Substance: PEMETREXED
     Dosage: MAINTENANCE
     Dates: start: 201906, end: 202002
  5. CARBOPLATIN [Suspect]
     Active Substance: CARBOPLATIN
     Indication: Non-small cell lung cancer
     Dosage: FIRST LINE, 4 CYCLES
     Dates: start: 201902, end: 201905
  6. DOCETAXEL [Suspect]
     Active Substance: DOCETAXEL
     Indication: Non-small cell lung cancer
     Dosage: 2ND LINE
     Dates: start: 202003, end: 202007
  7. NINTEDANIB [Suspect]
     Active Substance: NINTEDANIB
     Indication: Non-small cell lung cancer
     Dosage: 2ND LINE
     Dates: start: 202003, end: 202007
  8. NINTEDANIB [Suspect]
     Active Substance: NINTEDANIB
     Dosage: MAINTENANCE
     Dates: start: 202007, end: 202012

REACTIONS (3)
  - Malignant neoplasm progression [Unknown]
  - Seizure [Unknown]
  - Diarrhoea [Recovering/Resolving]

NARRATIVE: CASE EVENT DATE: 20200101
